FAERS Safety Report 9340963 (Version 2)
Quarter: 2013Q3

REPORT INFORMATION
  Report Type: Spontaneous
  Country: JP (occurrence: None)
  Receive Date: 20130604
  Receipt Date: 20130716
  Transmission Date: 20140515
  Serious: Yes (Hospitalization)
  Sender: FDA-Public Use
  Company Number: 0238948

PATIENT
  Age: 67 Year
  Sex: Male

DRUGS (4)
  1. TACHOSIL [Suspect]
     Indication: PROPHYLAXIS
     Dosage: (1 SHEET OF REGULAR SIZE)
     Dates: start: 20130213
  2. EXFORGE COMBINATION TABLET(AMLODIPINE W/VALSARTAN)(TABLETS) [Concomitant]
  3. LIDUC M (IPRAVASTATIN ( (10 MILLIGRAM, TABLETS) [Concomitant]
  4. ALOSITOL [Concomitant]

REACTIONS (6)
  - Infectious pleural effusion [None]
  - Wound infection [None]
  - Weight increased [None]
  - Transient ischaemic attack [None]
  - Cough [None]
  - Insomnia [None]
